FAERS Safety Report 7092656-2 (Version None)
Quarter: 2010Q4

REPORT INFORMATION
  Report Type: 
  Country: None (occurrence: None)
  Receive Date: 20101108
  Receipt Date: 20101108
  Transmission Date: 20110411
  Serious: Yes (Other)
  Sender: FDA-Public Use
  Company Number: None

PATIENT
  Age: 34 Year
  Sex: Male
  Weight: 90.7194 kg

DRUGS (3)
  1. AMOXICILLIN [Suspect]
     Indication: TOOTH INFECTION
     Dosage: 500MG 3X PER DAY PO
     Route: 048
     Dates: start: 20100928, end: 20101008
  2. AMOXICILLIN [Suspect]
     Indication: TOOTH INFECTION
     Dosage: 500MG 3X PER DAY PO
     Route: 048
     Dates: start: 20101019, end: 20101028
  3. IBUPROFEN [Concomitant]

REACTIONS (2)
  - DRUG INEFFECTIVE [None]
  - PRODUCT SUBSTITUTION ISSUE [None]
